FAERS Safety Report 13741129 (Version 2)
Quarter: 2017Q3

REPORT INFORMATION
  Report Type: Spontaneous
  Country: FR (occurrence: FR)
  Receive Date: 20170711
  Receipt Date: 20170714
  Transmission Date: 20171127
  Serious: Yes (Hospitalization)
  Sender: FDA-Public Use
  Company Number: FR-ACCORD-053473

PATIENT
  Age: 33 Year
  Sex: Male

DRUGS (11)
  1. ONDANSETRON ACCORD [Suspect]
     Active Substance: ONDANSETRON
     Indication: HODGKIN^S DISEASE
     Dosage: STRENGTH: 2 MG/ML, SOLUTION INJECTABLE, DURING CYCLE 1
     Route: 042
     Dates: start: 20170513, end: 20170515
  2. BACTRIM [Concomitant]
     Active Substance: SULFAMETHOXAZOLE\TRIMETHOPRIM
     Route: 048
     Dates: start: 20170516
  3. SPECIAFOLDINE [Concomitant]
     Active Substance: FOLIC ACID
     Dosage: STRENGTH: 5 MG, COMPRESSED
     Route: 048
     Dates: start: 20170516
  4. MESNA EG [Suspect]
     Active Substance: MESNA
     Indication: HODGKIN^S DISEASE
     Dosage: STRENGTH: 100 MG/ML
     Route: 042
     Dates: start: 20170513, end: 20170515
  5. ETOPOSIDE MYLAN [Suspect]
     Active Substance: ETOPOSIDE
     Indication: HODGKIN^S DISEASE
     Dosage: STRENGTH: 20 MG/ML, DURING TWO HOURS.
     Route: 042
     Dates: start: 20170514, end: 20170515
  6. AUGMENTIN [Concomitant]
     Active Substance: AMOXICILLIN\CLAVULANATE POTASSIUM
     Dosage: 1 G/125 MG ADULTS, POWDER FOR ORAL SUSPENSION IN SACHET-DOSE
     Route: 048
     Dates: start: 20170516, end: 20170525
  7. ZELITREX [Concomitant]
     Active Substance: VALACYCLOVIR HYDROCHLORIDE
     Route: 048
     Dates: start: 20170516
  8. METHYLPREDNISOLONE MYLAN [Suspect]
     Active Substance: METHYLPREDNISOLONE
     Indication: HODGKIN^S DISEASE
     Dosage: STRENGTH: 120 MG DURING CYCLE 1. DOSE: 60 MG/M2 EQUIVALENT TO 0.11 G.?ROA: IM-IV.
     Route: 042
     Dates: start: 20170513, end: 20170515
  9. CAELYX [Suspect]
     Active Substance: DOXORUBICIN HYDROCHLORIDE
     Indication: HODGKIN^S DISEASE
     Dosage: STRENGTH: 2 MG/ML, 66 MG VIA INTRAVENOUS ROUTE IN SHORT INFUSION
     Route: 042
     Dates: start: 20170513, end: 20170515
  10. NATULAN ROCHE [Suspect]
     Active Substance: PROCARBAZINE HYDROCHLORIDE
     Indication: HODGKIN^S DISEASE
     Route: 048
     Dates: start: 20170513, end: 20170515
  11. ENDOXAN [Suspect]
     Active Substance: CYCLOPHOSPHAMIDE
     Indication: HODGKIN^S DISEASE
     Dosage: DURING TWO HOURS
     Route: 042
     Dates: start: 20170513, end: 20170515

REACTIONS (2)
  - Off label use [Unknown]
  - Posterior reversible encephalopathy syndrome [Recovered/Resolved]

NARRATIVE: CASE EVENT DATE: 20170517
